FAERS Safety Report 15838761 (Version 2)
Quarter: 2019Q1

REPORT INFORMATION
  Report Type: Spontaneous
  Country: GB (occurrence: GB)
  Receive Date: 20190117
  Receipt Date: 20190121
  Transmission Date: 20190417
  Serious: Yes (Other)
  Sender: FDA-Public Use
  Company Number: GB-PFIZER INC-2019019112

PATIENT
  Age: 64 Year
  Sex: Male
  Weight: 101 kg

DRUGS (10)
  1. FUROSEMIDE. [Interacting]
     Active Substance: FUROSEMIDE
     Dosage: 80 MG, DAILY
     Route: 065
  2. BECLOMETASONE [Concomitant]
     Active Substance: BECLOMETHASONE DIPROPIONATE
     Dosage: UNK
  3. EPLERENONE. [Interacting]
     Active Substance: EPLERENONE
     Dosage: 50 MG, DAILY
     Route: 065
  4. METOPROLOL. [Interacting]
     Active Substance: METOPROLOL
     Dosage: 50 MG, DAILY
     Route: 065
  5. AMIODARONE HCL [Suspect]
     Active Substance: AMIODARONE HYDROCHLORIDE
     Dosage: 200 MG, DAILY
     Route: 065
  6. BETAHISTINE HYDROCHLORIDE [Interacting]
     Active Substance: BETAHISTINE HYDROCHLORIDE
     Indication: LABYRINTHITIS
     Dosage: 72 MG, DAILY
     Route: 048
     Dates: start: 20181213, end: 20181217
  7. ATORVASTATIN [Concomitant]
     Active Substance: ATORVASTATIN
     Dosage: UNK
  8. WARFARIN [Concomitant]
     Active Substance: WARFARIN
     Dosage: UNK
  9. RANITIDINE. [Concomitant]
     Active Substance: RANITIDINE
     Dosage: UNK
  10. ACETYLSALICYLIC ACID [Concomitant]
     Active Substance: ASPIRIN
     Dosage: 75 MG, UNK

REACTIONS (4)
  - Drug interaction [Unknown]
  - Pleural effusion [Recovering/Resolving]
  - Condition aggravated [Recovering/Resolving]
  - Blood pressure inadequately controlled [Recovering/Resolving]

NARRATIVE: CASE EVENT DATE: 20181213
